FAERS Safety Report 8206139-7 (Version None)
Quarter: 2012Q1

REPORT INFORMATION
  Report Type: 
  Country: None (occurrence: None)
  Receive Date: 20120313
  Receipt Date: 20120308
  Transmission Date: 20120608
  Serious: Yes (Hospitalization)
  Sender: FDA-Public Use
  Company Number: US-AMGEN-USASP2012015486

PATIENT
  Age: 79 Year
  Sex: Female

DRUGS (3)
  1. CYCLOPHOSPHAMIDE [Concomitant]
     Indication: BREAST CANCER
  2. DOXORUBICIN HCL [Concomitant]
     Indication: BREAST CANCER
  3. NEULASTA [Suspect]
     Indication: BREAST CANCER
     Dates: start: 20120216

REACTIONS (1)
  - NEUTROPENIA [None]
